FAERS Safety Report 8739146 (Version 2)
Quarter: 2013Q4

REPORT INFORMATION
  Report Type: Spontaneous
  Country: GB (occurrence: GB)
  Receive Date: 20120823
  Receipt Date: 20131003
  Transmission Date: 20140711
  Serious: Yes (Other)
  Sender: FDA-Public Use
  Company Number: GB-009507513-1006GBR00008

PATIENT
  Age: 35 Year
  Sex: Female

DRUGS (2)
  1. MAXALT 10 MG TABLETS [Suspect]
     Indication: MIGRAINE
     Dosage: 3 DF, UNK
     Route: 048
     Dates: start: 20100504
  2. MEBEVERINE HYDROCHLORIDE [Concomitant]
     Dosage: UNK
     Dates: start: 20120507

REACTIONS (2)
  - Abortion spontaneous [Unknown]
  - Maternal exposure timing unspecified [Recovered/Resolved]
